FAERS Safety Report 23721503 (Version 1)
Quarter: 2024Q2

REPORT INFORMATION
  Report Type: Spontaneous
  Country: US (occurrence: US)
  Receive Date: 20240409
  Receipt Date: 20240409
  Transmission Date: 20240715
  Serious: No
  Sender: FDA-Public Use
  Company Number: US-BAUSCH-BL-2024-005302

PATIENT
  Sex: Female

DRUGS (1)
  1. JUBLIA [Suspect]
     Active Substance: EFINACONAZOLE
     Indication: Product used for unknown indication
     Route: 061

REACTIONS (6)
  - Application site cellulitis [Unknown]
  - Application site fissure [Unknown]
  - Nail disorder [Unknown]
  - Application site erythema [Unknown]
  - Product formulation issue [Unknown]
  - Suspected product quality issue [Unknown]
